FAERS Safety Report 21303072 (Version 1)
Quarter: 2022Q3

REPORT INFORMATION
  Report Type: Spontaneous
  Country: CN (occurrence: CN)
  Receive Date: 20220907
  Receipt Date: 20220907
  Transmission Date: 20221027
  Serious: Yes (Other)
  Sender: FDA-Public Use
  Company Number: CN-GUERBET-CN-20220139

PATIENT
  Age: 67 Year
  Sex: Male

DRUGS (5)
  1. IOVERSOL [Suspect]
     Active Substance: IOVERSOL
     Indication: Angiogram cerebral
     Route: 065
     Dates: start: 20211025, end: 20211025
  2. ASPIRIN [Concomitant]
     Active Substance: ASPIRIN
     Indication: Antiplatelet therapy
     Route: 065
     Dates: start: 202110
  3. ARGATROBAN [Concomitant]
     Active Substance: ARGATROBAN
     Indication: Anticoagulant therapy
     Route: 065
     Dates: start: 202110, end: 202110
  4. GINKGO [Concomitant]
     Active Substance: GINKGO
     Indication: Product used for unknown indication
     Route: 065
     Dates: start: 202110
  5. ATORVASTATIN CALCIUM [Concomitant]
     Active Substance: ATORVASTATIN CALCIUM
     Indication: Product used for unknown indication
     Route: 065

REACTIONS (1)
  - Contrast encephalopathy [Recovering/Resolving]
